FAERS Safety Report 6115541-9 (Version None)
Quarter: 2009Q1

REPORT INFORMATION
  Report Type: 
  Country: None (occurrence: None)
  Receive Date: 20090313
  Receipt Date: 20090302
  Transmission Date: 20090719
  Serious: Yes (Death, Hospitalization)
  Sender: FDA-Public Use
  Company Number: SE-ELI_LILLY_AND_COMPANY-SE200903000855

PATIENT
  Sex: Female

DRUGS (10)
  1. ZYPREXA [Suspect]
     Indication: DEPRESSION
     Dosage: 2.5 MG, DAILY (1/D)
     Route: 048
     Dates: start: 20081001, end: 20081229
  2. CIPRALEX [Concomitant]
  3. COZAAR [Concomitant]
  4. LEVOTHYROXINE SODIUM [Concomitant]
  5. OMEPRAZOLE [Concomitant]
  6. METOPROLOL TARTRATE [Concomitant]
  7. SIMVASTATIN [Concomitant]
  8. ALVEDON [Concomitant]
  9. TROMBYL [Concomitant]
  10. PERSANTINE [Concomitant]

REACTIONS (1)
  - CEREBRAL INFARCTION [None]
